FAERS Safety Report 8523469-X (Version None)
Quarter: 2012Q3

REPORT INFORMATION
  Report Type: 
  Country: None (occurrence: None)
  Receive Date: 20120720
  Receipt Date: 20120713
  Transmission Date: 20120928
  Serious: Yes (Death, Other)
  Sender: FDA-Public Use
  Company Number: IT-JNJFOC-20120700667

PATIENT

DRUGS (6)
  1. CYCLOPHOSPHAMIDE [Suspect]
     Indication: DIFFUSE LARGE B-CELL LYMPHOMA
     Dosage: 750 MG/M2 ON DAY 1 FOR CHOP AND 750 MG/M2 ON DAY 2 FOR R-CHOP
     Route: 042
  2. DOXORUBICIN HCL [Suspect]
     Indication: DIFFUSE LARGE B-CELL LYMPHOMA
     Dosage: 50 MG/M2 ON DAY 1 FOR CHOP AND 50 MG/M2 ON DAY 2 FOR R-CHOP
     Route: 042
  3. RITUXIMAB [Suspect]
     Indication: DIFFUSE LARGE B-CELL LYMPHOMA
     Dosage: 375 MG/M2 ON DAY 1 FOR R-CHOP
     Route: 042
  4. VINCRISTINE [Suspect]
     Indication: DIFFUSE LARGE B-CELL LYMPHOMA
     Dosage: 1.4 MG/M2 ON DAY 1 FOR CHOP AND 1.4 MG/M2 ON DAY 2 FOR R-CHOP UPTO A MAXIMUM DOSE OF 2 MG
     Route: 042
  5. PREDNISONE [Suspect]
     Indication: DIFFUSE LARGE B-CELL LYMPHOMA
     Dosage: 100 MG ON DAYS 1-5 FOR CHOP AND R-CHOP
     Route: 048
  6. NEUPOGEN [Concomitant]
     Indication: PROPHYLAXIS
     Dosage: FROM DAY 6 UPTO NEUTROPHIL RECOVERY
     Route: 065

REACTIONS (14)
  - SEPTIC SHOCK [None]
  - LYMPHOMA [None]
  - ADVERSE EVENT [None]
  - DIFFUSE LARGE B-CELL LYMPHOMA [None]
  - THROMBOCYTOPENIA [None]
  - NEUROTOXICITY [None]
  - CARDIOTOXICITY [None]
  - DIFFUSE LARGE B-CELL LYMPHOMA RECURRENT [None]
  - FEBRILE NEUTROPENIA [None]
  - TOXICITY TO VARIOUS AGENTS [None]
  - SEPSIS [None]
  - NEUTROPENIA [None]
  - MUCOSAL INFLAMMATION [None]
  - ANAEMIA [None]
